FAERS Safety Report 9593010 (Version 1)
Quarter: 2013Q3

REPORT INFORMATION
  Report Type: Spontaneous
  Country: US (occurrence: None)
  Receive Date: 20130930
  Receipt Date: 20130930
  Transmission Date: 20140515
  Serious: Yes (Other)
  Sender: FDA-Public Use
  Company Number: 1000047429

PATIENT
  Sex: Male

DRUGS (3)
  1. LINZESS (LINACLOTIDE) (CAPSULES) [Suspect]
     Indication: IRRITABLE BOWEL SYNDROME
     Dates: start: 201304, end: 2013
  2. VALIUM (DIAZEPAM) (DIAZEPAM) [Concomitant]
  3. KLONOPIN [Concomitant]

REACTIONS (4)
  - Sedation [None]
  - Nausea [None]
  - Headache [None]
  - Anxiety [None]
